FAERS Safety Report 11133726 (Version 2)
Quarter: 2015Q2

REPORT INFORMATION
  Report Type: Spontaneous
  Country: GB (occurrence: GB)
  Receive Date: 20150524
  Receipt Date: 20150528
  Transmission Date: 20150821
  Serious: Yes (Death, Life-Threatening, Hospitalization)
  Sender: FDA-Public Use
  Company Number: GB-JNJFOC-20150512793

PATIENT
  Age: 88 Year
  Sex: Male
  Weight: 97 kg

DRUGS (2)
  1. XARELTO [Suspect]
     Active Substance: RIVAROXABAN
     Indication: EMBOLISM VENOUS
     Route: 065
     Dates: start: 20150331
  2. XARELTO [Suspect]
     Active Substance: RIVAROXABAN
     Indication: PULMONARY EMBOLISM
     Route: 065
     Dates: start: 20150331

REACTIONS (8)
  - Drug dose omission [Unknown]
  - Cardiac arrest [Unknown]
  - Hypotension [Unknown]
  - Fall [Unknown]
  - Wrong technique in drug usage process [Unknown]
  - Pulmonary embolism [Fatal]
  - Circulatory collapse [Unknown]
  - Tachycardia [Unknown]

NARRATIVE: CASE EVENT DATE: 20150331
